FAERS Safety Report 4937117-9 (Version None)
Quarter: 2006Q1

REPORT INFORMATION
  Report Type: 
  Country: None (occurrence: None)
  Receive Date: 20060302
  Receipt Date: 20060217
  Transmission Date: 20060701
  Serious: Yes (Other)
  Sender: FDA-Public Use
  Company Number: S06-FRA-00810-01

PATIENT
  Age: 46 Year
  Sex: Female

DRUGS (3)
  1. ESCITALOPRAM OXALATE [Suspect]
     Dosage: 10 MG QD PO
     Route: 048
     Dates: start: 20060201, end: 20060201
  2. RISPERDAL [Concomitant]
  3. LORMETAZEPAM [Concomitant]

REACTIONS (1)
  - RECTAL HAEMORRHAGE [None]
